FAERS Safety Report 5155097-0 (Version None)
Quarter: 2006Q4

REPORT INFORMATION
  Report Type: 
  Country: None (occurrence: None)
  Receive Date: 20061120
  Receipt Date: 20061120
  Transmission Date: 20070319
  Serious: No
  Sender: FDA-Public Use
  Company Number: None

PATIENT
  Age: 48 Year
  Sex: Male
  Weight: 67.1324 kg

DRUGS (1)
  1. LITHIUM 300 MG [Suspect]
     Dosage: 900 MG   DAILY  PO
     Route: 048

REACTIONS (1)
  - HYPOTHYROIDISM [None]
